FAERS Safety Report 8719813 (Version 2)
Quarter: 2013Q2

REPORT INFORMATION
  Report Type: Spontaneous
  Country: US (occurrence: None)
  Receive Date: 20120423
  Receipt Date: 20121227
  Transmission Date: 20140414
  Serious: Yes (Other)
  Sender: FDA-Public Use
  Company Number: PHEH2009US15417

PATIENT
  Age: 74 Year
  Sex: Male

DRUGS (7)
  1. EXJADE [Suspect]
     Indication: BLOOD IRON INCREASED
     Dosage: 1750 MG, QD, ORAL
     Route: 048
     Dates: start: 20090316
  2. EXJADE [Suspect]
     Indication: TRANSFUSION
     Dosage: 1750 MG, QD, ORAL
     Route: 048
     Dates: start: 20090316
  3. EXJADE [Suspect]
     Indication: IRON METABOLISM DISORDER
     Dosage: 1750 MG, QD, ORAL
     Route: 048
     Dates: start: 20090316
  4. ASPIRIN (ACETYLSALICYLIC ACID) [Concomitant]
  5. HYDREA [Concomitant]
  6. TRIHEXYPHENIDYL HYDROCHLORIDE [Concomitant]
  7. PREDNISONE (PREDISONE) [Concomitant]

REACTIONS (4)
  - RENAL IMPAIRMENT [None]
  - BLOOD UREA INCREASED [None]
  - BLOOD CREATININE INCREASED [None]
  - Serum ferritin increased [None]
